FAERS Safety Report 9177149 (Version 1)
Quarter: 2013Q1

REPORT INFORMATION
  Report Type: Spontaneous
  Country: US (occurrence: US)
  Receive Date: 20130321
  Receipt Date: 20130321
  Transmission Date: 20140127
  Serious: Yes (Hospitalization, Other)
  Sender: FDA-Public Use
  Company Number: US-JNJFOC-2005117928

PATIENT
  Age: 15 Year
  Sex: Female
  Weight: 63.5 kg

DRUGS (4)
  1. IBUPROFEN [Suspect]
     Indication: ILL-DEFINED DISORDER
     Dosage: FREQUENCY TEXT: UNKNOWN DAILY DOSE TEXT: UNKNOWN
     Route: 048
  2. ZOLOFT [Suspect]
     Indication: DEPRESSION
     Dosage: FREQUENCY TEXT: UNKNOWN DAILY DOSE TEXT: UNKNOWN
     Route: 048
  3. DIPHENHYDRAMINE [Suspect]
     Indication: ILL-DEFINED DISORDER
     Dosage: FREQUENCY TEXT: UNKNOWN DAILY DOSE TEXT: UNKNOWN
     Route: 048
  4. DIPHENHYDRAMINE [Suspect]
     Indication: ILL-DEFINED DISORDER
     Dosage: FREQUENCY TEXT: UNKNOWN DAILY DOSE TEXT: UNKNOWN
     Route: 048

REACTIONS (6)
  - Overdose [Recovering/Resolving]
  - Bundle branch block right [Recovering/Resolving]
  - Sinus tachycardia [Recovering/Resolving]
  - Myocardial ischaemia [Recovering/Resolving]
  - Electrocardiogram QT prolonged [Recovered/Resolved]
  - Somnolence [Recovering/Resolving]
